FAERS Safety Report 8119488-8 (Version None)
Quarter: 2012Q1

REPORT INFORMATION
  Report Type: 
  Country: None (occurrence: None)
  Receive Date: 20120207
  Receipt Date: 20120130
  Transmission Date: 20120608
  Serious: Yes (Death, Other)
  Sender: FDA-Public Use
  Company Number: PHHY2012JP006268

PATIENT
  Age: 59 Year
  Sex: Female

DRUGS (2)
  1. CHEMOTHERAPEUTICS [Concomitant]
     Indication: METASTASIS
  2. ZOLEDRONIC ACID [Suspect]
     Indication: METASTASES TO BONE
     Dosage: 4 MG, EVERY 2 MONTHS
     Route: 041
     Dates: start: 20071001, end: 20100401

REACTIONS (6)
  - MOUTH ULCERATION [None]
  - GENERAL PHYSICAL HEALTH DETERIORATION [None]
  - STOMATITIS [None]
  - OSTEONECROSIS OF JAW [None]
  - TORUS FRACTURE [None]
  - EXPOSED BONE IN JAW [None]
